FAERS Safety Report 20006706 (Version 1)
Quarter: 2021Q4

REPORT INFORMATION
  Report Type: Report from Study
  Country: US (occurrence: US)
  Receive Date: 20211028
  Receipt Date: 20211028
  Transmission Date: 20220303
  Serious: Yes (Other)
  Sender: FDA-Public Use
  Company Number: US-TEVA-2021-US-1968376

PATIENT
  Sex: Female

DRUGS (1)
  1. CLARAVIS [Suspect]
     Active Substance: ISOTRETINOIN
     Route: 065
     Dates: start: 20210813, end: 20211013

REACTIONS (4)
  - Suicidal ideation [Unknown]
  - Intentional self-injury [Unknown]
  - Mood altered [Recovering/Resolving]
  - Panic attack [Unknown]
